FAERS Safety Report 7190135-5 (Version None)
Quarter: 2010Q4

REPORT INFORMATION
  Report Type: 
  Country: None (occurrence: None)
  Receive Date: 20101223
  Receipt Date: 20101215
  Transmission Date: 20110411
  Serious: Yes (Other)
  Sender: FDA-Public Use
  Company Number: US-ASTELLAS-2010US005106

PATIENT

DRUGS (5)
  1. LEXISCAN [Suspect]
     Indication: SCAN MYOCARDIAL PERFUSION
     Dosage: 0.4 MG OVER 10 SECONDS, TOTAL DOSE
     Route: 042
     Dates: start: 20101210, end: 20101210
  2. COREG [Concomitant]
     Indication: CARDIAC DISORDER
     Dosage: UNK
     Route: 065
  3. LISINOPRIL [Concomitant]
     Indication: CARDIAC DISORDER
     Dosage: UNK
     Route: 065
  4. NORVASC [Concomitant]
     Indication: CARDIAC DISORDER
     Dosage: UNK
     Route: 065
  5. DIABETIC MEDICATION [Concomitant]
     Indication: DIABETES MELLITUS
     Dosage: UNK
     Route: 065

REACTIONS (3)
  - CONVULSION [None]
  - HYPOTENSION [None]
  - SICK SINUS SYNDROME [None]
